FAERS Safety Report 18308486 (Version 4)
Quarter: 2020Q4

REPORT INFORMATION
  Report Type: Report from Study
  Country: JP (occurrence: JP)
  Receive Date: 20200924
  Receipt Date: 20201204
  Transmission Date: 20210113
  Serious: Yes (Other)
  Sender: FDA-Public Use
  Company Number: JP-CELGENEUS-JPN-20191107065

PATIENT
  Age: 78 Year
  Sex: Male
  Weight: 67 kg

DRUGS (19)
  1. GRANISETRON HYDROCHLORIDE. [Concomitant]
     Active Substance: GRANISETRON HYDROCHLORIDE
     Indication: PROPHYLAXIS OF NAUSEA AND VOMITING
     Dosage: 1 MILLIGRAM
     Route: 048
     Dates: start: 20190722
  2. AZACITIDINE ORAL (CC-486) [Suspect]
     Active Substance: AZACITIDINE
     Dosage: UNKNOWN
     Route: 048
     Dates: start: 20191120, end: 20200918
  3. AZACITIDINE ORAL (CC-486) [Suspect]
     Active Substance: AZACITIDINE
     Route: 048
     Dates: start: 20200925
  4. LOPERAMIDE HYDROCHLORIDE. [Concomitant]
     Active Substance: LOPERAMIDE HYDROCHLORIDE
     Indication: DIARRHOEA
     Dosage: 2 MILLIGRAM
     Route: 048
     Dates: start: 20190719, end: 20190724
  5. METOCLOPRAMIDE HYDROCHLORIDE. [Concomitant]
     Active Substance: METOCLOPRAMIDE HYDROCHLORIDE
     Indication: VOMITING
     Dosage: 10 MILLIGRAM
     Route: 041
     Dates: start: 20190719, end: 20190719
  6. AZACITIDINE ORAL (CC-486) [Suspect]
     Active Substance: AZACITIDINE
     Route: 048
     Dates: start: 20191114, end: 20191119
  7. CANDESARTAN CILEXETIL. [Concomitant]
     Active Substance: CANDESARTAN CILEXETIL
     Indication: CAROTID ARTERY STENOSIS
     Dosage: 4 MILLIGRAM
     Route: 048
     Dates: start: 2011, end: 20190722
  8. HYDROCORTISONE BUTYRATE. [Concomitant]
     Active Substance: HYDROCORTISONE BUTYRATE
     Indication: PRURITUS
     Dosage: 1 APPLICATION
     Route: 061
     Dates: start: 20190125, end: 20190803
  9. HYDROXYZINE HYDROCHLORIDE. [Concomitant]
     Active Substance: HYDROXYZINE HYDROCHLORIDE
     Indication: VOMITING
     Dosage: 25 MILLIGRAM
     Route: 041
     Dates: start: 20190719, end: 20190719
  10. PREDNISOLONE. [Concomitant]
     Active Substance: PREDNISOLONE
     Dosage: 10 MILLIGRAM
     Route: 048
     Dates: start: 20180802
  11. GRANISETRON HYDROCHLORIDE. [Concomitant]
     Active Substance: GRANISETRON HYDROCHLORIDE
     Indication: VOMITING
     Dosage: 1 MILLIGRAM
     Route: 041
     Dates: start: 20190719, end: 20190719
  12. AZACITIDINE ORAL (CC-486) [Suspect]
     Active Substance: AZACITIDINE
     Indication: ANGIOIMMUNOBLASTIC T-CELL LYMPHOMA
     Dosage: UNKNOWN
     Route: 048
     Dates: start: 20171002, end: 20171215
  13. AZACITIDINE ORAL (CC-486) [Suspect]
     Active Substance: AZACITIDINE
     Route: 048
     Dates: start: 20190719, end: 20190801
  14. LOPERAMIDE HYDROCHLORIDE. [Concomitant]
     Active Substance: LOPERAMIDE HYDROCHLORIDE
     Indication: PROPHYLAXIS AGAINST DIARRHOEA
  15. SOLDEM [Concomitant]
     Active Substance: DEXTROSE\POTASSIUM CHLORIDE\SODIUM CHLORIDE\SODIUM LACTATE
     Indication: PROPHYLAXIS AGAINST DEHYDRATION
     Dosage: 1000 MILLILITER
     Route: 041
     Dates: start: 20190719, end: 20190723
  16. PREDNISOLONE. [Concomitant]
     Active Substance: PREDNISOLONE
     Indication: ANGIOIMMUNOBLASTIC T-CELL LYMPHOMA
     Dosage: UNKNOWN
     Route: 065
     Dates: start: 20170208, end: 20170609
  17. SULFAMETHOXAZOLE/TRIMETHOPRIM [Concomitant]
     Active Substance: SULFAMETHOXAZOLE\TRIMETHOPRIM
     Indication: INFECTION PROPHYLAXIS
     Dosage: 0.5 TABLET
     Route: 048
     Dates: start: 20190122
  18. ALFACALCIDOL [Concomitant]
     Active Substance: ALFACALCIDOL
     Indication: OSTEOPOROSIS PROPHYLAXIS
     Dosage: 0.5 MICROGRAM
     Route: 048
     Dates: start: 20181227
  19. ASPIRIN. [Concomitant]
     Active Substance: ASPIRIN
     Indication: CAROTID ARTERY STENOSIS
     Dosage: 100 MILLIGRAM
     Route: 048
     Dates: start: 2011

REACTIONS (2)
  - Diffuse large B-cell lymphoma [Not Recovered/Not Resolved]
  - Epstein-Barr virus test positive [Not Recovered/Not Resolved]

NARRATIVE: CASE EVENT DATE: 20190722
